FAERS Safety Report 25761864 (Version 1)
Quarter: 2025Q3

REPORT INFORMATION
  Report Type: Spontaneous
  Country: JP (occurrence: JP)
  Receive Date: 20250904
  Receipt Date: 20250904
  Transmission Date: 20251021
  Serious: Yes (Other)
  Sender: MERCK SHARP & DOHME LLC
  Company Number: JP-009507513-2290919

PATIENT

DRUGS (2)
  1. KEYTRUDA [Suspect]
     Active Substance: PEMBROLIZUMAB
     Indication: Bladder transitional cell carcinoma
     Route: 041
     Dates: start: 20250526
  2. PADCEV [Concomitant]
     Active Substance: ENFORTUMAB VEDOTIN-EJFV
     Dates: start: 20250526

REACTIONS (3)
  - Anaphylactic shock [Unknown]
  - Infusion related reaction [Unknown]
  - Blood pressure decreased [Unknown]

NARRATIVE: CASE EVENT DATE: 20250526
